FAERS Safety Report 19028268 (Version 2)
Quarter: 2021Q1

REPORT INFORMATION
  Report Type: Spontaneous
  Country: CA (occurrence: CA)
  Receive Date: 20210319
  Receipt Date: 20210323
  Transmission Date: 20210420
  Serious: Yes (Other)
  Sender: FDA-Public Use
  Company Number: CA-AUROBINDO-AUR-APL-2020-047532

PATIENT
  Age: 55 Year
  Sex: Female

DRUGS (10)
  1. CANDESARTAN TABLETS [Suspect]
     Active Substance: CANDESARTAN
     Indication: MIGRAINE
     Dosage: 16 MILLIGRAM
     Route: 048
  2. NAPROXEN. [Concomitant]
     Active Substance: NAPROXEN
     Indication: PRODUCT USED FOR UNKNOWN INDICATION
     Dosage: 500 MILLIGRAM
     Route: 065
  3. OSTO?D2 [Concomitant]
     Indication: PRODUCT USED FOR UNKNOWN INDICATION
     Dosage: 50000.0 INTERNATIONAL UNIT, EVERY WEEK
     Route: 065
  4. MODAFINIL. [Concomitant]
     Active Substance: MODAFINIL
     Indication: PRODUCT USED FOR UNKNOWN INDICATION
     Dosage: 100 MILLIGRAM, TWO TIMES A DAY
     Route: 065
  5. PANTOPRAZOLE [Suspect]
     Active Substance: PANTOPRAZOLE
     Indication: MIGRAINE
     Dosage: 40 MILLIGRAM, TWO TIMES A DAY
     Route: 065
  6. CANDESARTAN TABLETS [Suspect]
     Active Substance: CANDESARTAN
     Indication: BLOOD PRESSURE ABNORMAL
     Dosage: 8 MILLIGRAM
     Route: 048
  7. TOPIRAMATE. [Suspect]
     Active Substance: TOPIRAMATE
     Indication: MIGRAINE
     Dosage: UNK
     Route: 065
  8. AIMOVIG [Suspect]
     Active Substance: ERENUMAB-AOOE
     Indication: MIGRAINE
     Dosage: 14 MILLIGRAM(1 EVERY 1 MONTHS)
     Route: 065
  9. FERROUS FUMARATE [Concomitant]
     Active Substance: FERROUS FUMARATE
     Indication: PRODUCT USED FOR UNKNOWN INDICATION
     Dosage: 300 MILLIGRAM
     Route: 065
  10. FLUOXETINE [Suspect]
     Active Substance: FLUOXETINE HYDROCHLORIDE
     Indication: MIGRAINE
     Dosage: 20 MILLIGRAM
     Route: 065

REACTIONS (14)
  - Headache [Unknown]
  - Hypoaesthesia oral [Unknown]
  - Eye pain [Unknown]
  - Therapeutic product effect decreased [Unknown]
  - Blood pressure measurement [Unknown]
  - Nausea [Unknown]
  - Dysstasia [Unknown]
  - Off label use [Unknown]
  - Hypertension [Unknown]
  - Pain of skin [Unknown]
  - Swelling face [Unknown]
  - Drug intolerance [Unknown]
  - Heart rate [Unknown]
  - Photophobia [Unknown]
